FAERS Safety Report 5083669-0 (Version None)
Quarter: 2006Q3

REPORT INFORMATION
  Report Type: 
  Country: None (occurrence: None)
  Receive Date: 20060816
  Receipt Date: 20060802
  Transmission Date: 20061208
  Serious: Yes (Hospitalization)
  Sender: FDA-Public Use
  Company Number: 2006BH012252

PATIENT
  Age: 21 Year
  Sex: Female
  Weight: 84.8226 kg

DRUGS (2)
  1. ANTICOAGULANT SODIUM CITRATE SOLUTION 250 ML [Suspect]
     Indication: PLASMAPHERESIS
     Dosage: ONCE;IV
     Route: 042
     Dates: start: 20060707, end: 20060707
  2. SODIUM CHLORIDE 0.9% IN PLASTIC CONTAINER [Suspect]
     Indication: PLASMAPHERESIS
     Dosage: ONCE;IV
     Route: 042
     Dates: start: 20060707, end: 20060707

REACTIONS (7)
  - DEEP VEIN THROMBOSIS [None]
  - EXTRAVASATION BLOOD [None]
  - HYPOAESTHESIA [None]
  - INJECTION SITE BRUISING [None]
  - PAIN IN EXTREMITY [None]
  - SKIN TIGHTNESS [None]
  - TENDERNESS [None]
